FAERS Safety Report 6686363-5 (Version None)
Quarter: 2010Q2

REPORT INFORMATION
  Report Type: 
  Country: None (occurrence: None)
  Receive Date: 20100419
  Receipt Date: 20100408
  Transmission Date: 20101027
  Serious: Yes (Other)
  Sender: FDA-Public Use
  Company Number: US-JNJFOC-20091200606

PATIENT
  Sex: Male
  Weight: 92.08 kg

DRUGS (19)
  1. DURAGESIC-100 [Suspect]
     Indication: BACK DISORDER
     Route: 062
  2. DURAGESIC-100 [Suspect]
     Route: 062
  3. DURAGESIC-100 [Suspect]
     Route: 062
  4. DURAGESIC-100 [Suspect]
     Route: 062
  5. DURAGESIC-100 [Suspect]
     Route: 062
  6. DURAGESIC-100 [Suspect]
     Route: 062
  7. DURAGESIC-100 [Suspect]
     Route: 062
  8. DURAGESIC-100 [Suspect]
     Route: 062
  9. DURAGESIC-100 [Suspect]
     Route: 062
  10. UNKNOWN MEDICATION [Concomitant]
     Indication: NEPHROLITHIASIS
     Route: 065
  11. UNKNOWN MEDICATION [Concomitant]
     Indication: BACK DISORDER
     Route: 065
  12. PERCOCET [Concomitant]
  13. PERCOCET [Concomitant]
  14. PERCOCET [Concomitant]
  15. PERCOCET [Concomitant]
  16. PERCOCET [Concomitant]
  17. PERCOCET [Concomitant]
  18. FLONASE [Concomitant]
     Indication: RHINITIS ALLERGIC
  19. FLONASE [Concomitant]

REACTIONS (7)
  - APPLICATION SITE IRRITATION [None]
  - BACK PAIN [None]
  - DRUG ADMINISTERED AT INAPPROPRIATE SITE [None]
  - DRUG DOSE OMISSION [None]
  - PRODUCT ADHESION ISSUE [None]
  - RHINITIS ALLERGIC [None]
  - WRONG TECHNIQUE IN DRUG USAGE PROCESS [None]
